FAERS Safety Report 4971586-3 (Version None)
Quarter: 2006Q2

REPORT INFORMATION
  Report Type: 
  Country: None (occurrence: None)
  Receive Date: 20060407
  Receipt Date: 20060328
  Transmission Date: 20061013
  Serious: Yes (Other)
  Sender: FDA-Public Use
  Company Number: 2006021492

PATIENT
  Age: 37 Year
  Sex: Male

DRUGS (7)
  1. BENADRYL [Suspect]
     Dosage: POSSIBLY 24 KAPSEALS, NASAL
     Route: 045
     Dates: end: 20060216
  2. BENADRYL ALLERGY SINUS HEADACHE (DIPHENHYDRAMINE, PARACETAMOL, PSEUDOE [Suspect]
     Dates: end: 20060216
  3. QUETIAPINE FUMARATE [Concomitant]
  4. CLOZAPINE [Concomitant]
  5. BENZTROPINE MESYLATE [Concomitant]
  6. BUSPIRONE HCL [Concomitant]
  7. FAMOTIDINE [Concomitant]

REACTIONS (7)
  - ABASIA [None]
  - ANOREXIA [None]
  - FALL [None]
  - INTENTIONAL DRUG MISUSE [None]
  - LISTLESS [None]
  - OVERDOSE [None]
  - SLUGGISHNESS [None]
